FAERS Safety Report 12336063 (Version 1)
Quarter: 2016Q2

REPORT INFORMATION
  Report Type: Spontaneous
  Country: US (occurrence: US)
  Receive Date: 20160505
  Receipt Date: 20160505
  Transmission Date: 20160815
  Serious: No
  Sender: FDA-Public Use
  Company Number: US-PFIZER INC-2016200431

PATIENT
  Age: 63 Year
  Sex: Female
  Weight: 58.6 kg

DRUGS (2)
  1. HYDROCORTISONE. [Suspect]
     Active Substance: HYDROCORTISONE
     Dosage: 10MG TABLET, TAKES 2 TABLETS IN THE MORNING AND 1 TABLET IN THE EVENING
     Dates: end: 20160330
  2. HYDROCORTISONE. [Suspect]
     Active Substance: HYDROCORTISONE
     Dosage: TAKES 2 TABLETS IN THE MORNING AND 1 TABLET IN THE EVENING
     Dates: start: 20160331

REACTIONS (1)
  - Myalgia [Not Recovered/Not Resolved]

NARRATIVE: CASE EVENT DATE: 20160405
